FAERS Safety Report 5733411-2 (Version None)
Quarter: 2008Q2

REPORT INFORMATION
  Report Type: 
  Country: None (occurrence: None)
  Receive Date: 20080509
  Receipt Date: 20080130
  Transmission Date: 20081010
  Serious: No
  Sender: FDA-Public Use
  Company Number: US-BAYER-200813108NA

PATIENT
  Sex: Male

DRUGS (1)
  1. MIRENA [Suspect]
     Indication: CONTRACEPTION

REACTIONS (1)
  - GENITAL PAIN [None]
